FAERS Safety Report 20230812 (Version 1)
Quarter: 2021Q4

REPORT INFORMATION
  Report Type: Spontaneous
  Country: US (occurrence: US)
  Receive Date: 20211227
  Receipt Date: 20211227
  Transmission Date: 20220303
  Serious: Yes (Other)
  Sender: FDA-Public Use
  Company Number: US-MLMSERVICE-20211208-3256928-2

PATIENT
  Age: 72 Year
  Sex: Male

DRUGS (1)
  1. CEFUROXIME [Suspect]
     Active Substance: CEFUROXIME
     Indication: Product used for unknown indication
     Dosage: 1 MILLIGRAM (1.0 MG/0.1 ML OF ICC)
     Route: 065

REACTIONS (3)
  - Retinal toxicity [Recovered/Resolved with Sequelae]
  - Macular detachment [Recovered/Resolved with Sequelae]
  - Macular oedema [Recovered/Resolved with Sequelae]
